FAERS Safety Report 23789934 (Version 1)
Quarter: 2024Q2

REPORT INFORMATION
  Report Type: Spontaneous
  Country: US (occurrence: None)
  Receive Date: 20240424
  Receipt Date: 20240424
  Transmission Date: 20240716
  Serious: Yes (Hospitalization)
  Sender: FDA-Public Use
  Company Number: None

PATIENT
  Age: 69 Year
  Sex: Female

DRUGS (3)
  1. AMLODIPINE BESYLATE [Suspect]
     Active Substance: AMLODIPINE BESYLATE
     Indication: Hypertension
     Dosage: OTHER FREQUENCY : AM;?
     Route: 048
     Dates: start: 20181016, end: 20240129
  2. METOPROLOL TARTRATE [Suspect]
     Active Substance: METOPROLOL TARTRATE
     Indication: Hypertension
     Dosage: FREQUENCY : TWICE A DAY;?
     Route: 048
     Dates: start: 20170202, end: 20240129
  3. METOPROLOL TARTRATE [Suspect]
     Active Substance: METOPROLOL TARTRATE
     Indication: Hypertension

REACTIONS (11)
  - Confusional state [None]
  - Diarrhoea [None]
  - Hallucination [None]
  - Dysarthria [None]
  - Tremor [None]
  - Incoherent [None]
  - Encephalopathy [None]
  - Dehydration [None]
  - Hyperreflexia [None]
  - Serotonin syndrome [None]
  - Anxiety [None]

NARRATIVE: CASE EVENT DATE: 20240117
